FAERS Safety Report 20218073 (Version 1)
Quarter: 2021Q4

REPORT INFORMATION
  Report Type: Spontaneous
  Country: US (occurrence: US)
  Receive Date: 20211222
  Receipt Date: 20211222
  Transmission Date: 20220304
  Serious: No
  Sender: FDA-Public Use
  Company Number: US-SA-SAC20211214001225

PATIENT
  Sex: Male

DRUGS (4)
  1. DUPIXENT [Suspect]
     Active Substance: DUPILUMAB
     Indication: Pulmonary embolism
     Dosage: 300 MG, QOW
     Route: 058
     Dates: start: 20200728
  2. CLONIDINE [Concomitant]
     Active Substance: CLONIDINE
  3. LOSARTAN [Concomitant]
     Active Substance: LOSARTAN
  4. METOCLOPRAMIDE [Concomitant]
     Active Substance: METOCLOPRAMIDE

REACTIONS (2)
  - Back disorder [Not Recovered/Not Resolved]
  - Product use in unapproved indication [Unknown]
